FAERS Safety Report 6498889-8 (Version None)
Quarter: 2009Q4

REPORT INFORMATION
  Report Type: 
  Country: None (occurrence: None)
  Receive Date: 20091127
  Receipt Date: 20081027
  Transmission Date: 20100525
  Serious: No
  Sender: FDA-Public Use
  Company Number: 280800

PATIENT
  Age: 37 Year
  Sex: Female
  Weight: 140 kg

DRUGS (1)
  1. NOVOLOG [Suspect]
     Indication: TYPE 1 DIABETES MELLITUS
     Dosage: QD, SUBCUTAN.-PUMP
     Dates: start: 20060101

REACTIONS (5)
  - BLOOD GLUCOSE INCREASED [None]
  - DYSPNOEA [None]
  - EYE SWELLING [None]
  - URINE KETONE BODY PRESENT [None]
  - VOMITING [None]
